FAERS Safety Report 17065367 (Version 1)
Quarter: 2019Q4

REPORT INFORMATION
  Report Type: Spontaneous
  Country: US (occurrence: US)
  Receive Date: 20191122
  Receipt Date: 20191122
  Transmission Date: 20200122
  Serious: No
  Sender: FDA-Public Use
  Company Number: US-BRACCO-2019US02541

PATIENT
  Age: 56 Year
  Sex: Female

DRUGS (4)
  1. NORMAL SALINE [Concomitant]
     Active Substance: SODIUM CHLORIDE
     Dosage: UNK
     Dates: start: 20190520, end: 20190520
  2. ATROPINE. [Suspect]
     Active Substance: ATROPINE
     Indication: STRESS ECHOCARDIOGRAM
     Dosage: GIVEN WITH PEAK DOSE OF DOBUTAMINE
     Route: 042
     Dates: start: 20190520, end: 20190520
  3. LUMASON [Suspect]
     Active Substance: SULFUR HEXAFLUORIDE
     Indication: STRESS ECHOCARDIOGRAM
     Dosage: 2-3 CC AT BASE AND WITH EACH DOBUTAMINE STAGES
     Route: 042
     Dates: start: 20190520, end: 20190520
  4. DOBUTAMINE [Suspect]
     Active Substance: DOBUTAMINE HYDROCHLORIDE
     Indication: STRESS ECHOCARDIOGRAM
     Dosage: 10 MCQ, 20 MCQ, 30 MCQ, 40 MCQ (PEAK DOSE) OF DOBUTAMINE STAGES
     Route: 042
     Dates: start: 20190520, end: 20190520

REACTIONS (6)
  - Dry throat [Unknown]
  - Anxiety [Unknown]
  - Product preparation error [Unknown]
  - Dry mouth [Recovered/Resolved]
  - Wrong technique in product usage process [Unknown]
  - Dizziness [Unknown]

NARRATIVE: CASE EVENT DATE: 20190520
